FAERS Safety Report 8699989 (Version 2)
Quarter: 2015Q1

REPORT INFORMATION
  Report Type: Report from Study
  Country: US (occurrence: US)
  Receive Date: 20120802
  Receipt Date: 20150326
  Transmission Date: 20150721
  Serious: Yes (Other)
  Sender: FDA-Public Use
  Company Number: US-ROCHE-1094863

PATIENT
  Age: 60 Year
  Sex: Female

DRUGS (4)
  1. XOLAIR [Suspect]
     Active Substance: OMALIZUMAB
     Indication: ASTHMA
     Route: 058
     Dates: start: 20050802
  2. ADVAIR HFA [Concomitant]
     Active Substance: FLUTICASONE PROPIONATE\SALMETEROL XINAFOATE
     Route: 065
  3. FLUTICASONE [Concomitant]
     Active Substance: FLUTICASONE\FLUTICASONE PROPIONATE
     Dosage: 2 SPRAY EACH NOSTRIL
     Route: 065
  4. RHINOCORT [Concomitant]
     Active Substance: BUDESONIDE
     Dosage: 2 SPRAY EACH NOSTRIL
     Route: 065

REACTIONS (5)
  - Asthma [Unknown]
  - Pain in extremity [Unknown]
  - Medial tibial stress syndrome [Unknown]
  - Drug dose omission [Unknown]
  - Influenza [Unknown]

NARRATIVE: CASE EVENT DATE: 20131028
